FAERS Safety Report 6762054-7 (Version None)
Quarter: 2010Q2

REPORT INFORMATION
  Report Type: 
  Country: None (occurrence: None)
  Receive Date: 20100609
  Receipt Date: 20100603
  Transmission Date: 20101027
  Serious: Yes (Other)
  Sender: FDA-Public Use
  Company Number: CH-BRISTOL-MYERS SQUIBB COMPANY-15135338

PATIENT
  Sex: Male
  Weight: 3 kg

DRUGS (5)
  1. BUSPAR [Suspect]
     Route: 064
     Dates: end: 20090201
  2. TRAZODONE HCL [Suspect]
     Route: 064
     Dates: end: 20090201
  3. CIPRALEX [Suspect]
     Dosage: 10MG/D IN END OF FEB DURING TILL APR-MAY,REINTRODUCTION WITH 5MG/D TILL DELIVERY
     Route: 064
     Dates: start: 20090101, end: 20090806
  4. EFFEXOR [Suspect]
     Route: 064
     Dates: end: 20090201
  5. SERESTA [Suspect]
     Route: 064
     Dates: start: 20090201, end: 20090201

REACTIONS (1)
  - RESPIRATORY DISORDER NEONATAL [None]
